FAERS Safety Report 8707830 (Version 2)
Quarter: 2013Q4

REPORT INFORMATION
  Report Type: Spontaneous
  Country: US (occurrence: US)
  Receive Date: 20120806
  Receipt Date: 20131101
  Transmission Date: 20140711
  Serious: No
  Sender: FDA-Public Use
  Company Number: US-009507513-1208USA000611

PATIENT
  Sex: 0

DRUGS (2)
  1. JANUMET [Suspect]
     Dosage: UNK
  2. CLARITIN [Concomitant]
     Indication: ALLERGY TO ARTHROPOD STING

REACTIONS (1)
  - Local swelling [Unknown]
